FAERS Safety Report 7115348-X (Version None)
Quarter: 2010Q4

REPORT INFORMATION
  Report Type: 
  Country: None (occurrence: None)
  Receive Date: 20101122
  Receipt Date: 20101118
  Transmission Date: 20110411
  Serious: Yes (Hospitalization)
  Sender: FDA-Public Use
  Company Number: US-BRISTOL-MYERS SQUIBB COMPANY-15393598

PATIENT
  Age: 72 Year
  Sex: Male
  Weight: 73 kg

DRUGS (9)
  1. AVAPRO [Suspect]
     Dates: start: 20101013
  2. PLAVIX [Concomitant]
  3. ASPIRIN [Concomitant]
  4. VYTORIN [Concomitant]
     Dosage: 1 DF = 10/20MG
  5. RAPAFLO [Concomitant]
  6. SINGULAIR [Concomitant]
  7. CLONAZEPAM [Concomitant]
     Dosage: AT NIGHT
  8. NITROGLYCERIN [Concomitant]
  9. ASMANEX TWISTHALER [Concomitant]

REACTIONS (2)
  - CARDIOVASCULAR DISORDER [None]
  - RESPIRATORY FAILURE [None]
